FAERS Safety Report 20208491 (Version 2)
Quarter: 2022Q1

REPORT INFORMATION
  Report Type: Spontaneous
  Country: US (occurrence: US)
  Receive Date: 20211220
  Receipt Date: 20220112
  Transmission Date: 20220423
  Serious: Yes (Hospitalization)
  Sender: FDA-Public Use
  Company Number: US-TEVA-2021-US-1989734

PATIENT
  Age: 62 Year
  Sex: Male

DRUGS (2)
  1. IDARUBICIN [Suspect]
     Active Substance: IDARUBICIN
     Indication: Myeloid leukaemia
     Route: 065
  2. CYTARABINE [Suspect]
     Active Substance: CYTARABINE
     Indication: Myeloid leukaemia
     Dosage: 200MG/M2
     Route: 065

REACTIONS (2)
  - Hepatic function abnormal [Not Recovered/Not Resolved]
  - Pancytopenia [Not Recovered/Not Resolved]
